FAERS Safety Report 8184151-4 (Version None)
Quarter: 2012Q1

REPORT INFORMATION
  Report Type: 
  Country: None (occurrence: None)
  Receive Date: 20120305
  Receipt Date: 20120225
  Transmission Date: 20120608
  Serious: No
  Sender: FDA-Public Use
  Company Number: US-BAYER-2012-019836

PATIENT

DRUGS (1)
  1. ALEVE (CAPLET) [Suspect]
     Route: 048

REACTIONS (2)
  - DRUG INTOLERANCE [None]
  - DRUG INEFFECTIVE [None]
